FAERS Safety Report 23309218 (Version 1)
Quarter: 2023Q4

REPORT INFORMATION
  Report Type: Spontaneous
  Country: US (occurrence: US)
  Receive Date: 20231218
  Receipt Date: 20231218
  Transmission Date: 20240110
  Serious: No
  Sender: FDA-Public Use
  Company Number: US-GILEAD-2023-0655013

PATIENT
  Sex: Male

DRUGS (2)
  1. LENACAPAVIR [Suspect]
     Active Substance: LENACAPAVIR
     Indication: Product used for unknown indication
     Route: 058
  2. CABOTEGRAVIR [Concomitant]
     Active Substance: CABOTEGRAVIR
     Route: 058

REACTIONS (3)
  - Pain [Unknown]
  - Nodule [Unknown]
  - Nervous system disorder [Not Recovered/Not Resolved]
